FAERS Safety Report 8796454 (Version 2)
Quarter: 2012Q4

REPORT INFORMATION
  Report Type: 
  Country: US (occurrence: US)
  Receive Date: 20120919
  Receipt Date: 20121109
  Transmission Date: 20130627
  Serious: Yes (Hospitalization, Other)
  Sender: FDA-Public Use
  Company Number: US-MPIJNJ-2012-06407

PATIENT
  Age: 71 None
  Sex: Male
  Weight: 79 kg

DRUGS (7)
  1. VELCADE [Suspect]
     Indication: MULTIPLE MYELOMA
     Dosage: 2.56 mg, Cyclic
     Route: 058
     Dates: end: 201206
  2. DEXAMETHASONE [Suspect]
     Indication: MULTIPLE MYELOMA
  3. LENALIDOMIDE [Suspect]
     Indication: MULTIPLE MYELOMA
     Dosage: 15 mg, qd
     Route: 048
     Dates: start: 20120822
  4. FERROUS SULFATE [Concomitant]
     Indication: PRODUCT USED FOR UNKNOWN INDICATION
     Dosage: 325 mg, qd
     Route: 048
     Dates: start: 20120728
  5. OMEPRAZOLE [Concomitant]
     Indication: PRODUCT USED FOR UNKNOWN INDICATION
     Dosage: 20 mg, UNK
     Route: 048
  6. PYRIDOXINE [Concomitant]
     Indication: PRODUCT USED FOR UNKNOWN INDICATION
     Dosage: 50 mg, UNK
     Route: 048
     Dates: start: 20120604
  7. ASPIRIN [Concomitant]
     Indication: PRODUCT USED FOR UNKNOWN INDICATION

REACTIONS (9)
  - Cardiomyopathy [Not Recovered/Not Resolved]
  - Coronary artery disease [Unknown]
  - Mitral valve incompetence [Unknown]
  - Malnutrition [Unknown]
  - Weight decreased [Unknown]
  - Cardiac failure acute [Unknown]
  - Anaemia [Unknown]
  - Dyspnoea [Unknown]
  - Hypokalaemia [Unknown]
